FAERS Safety Report 8809111 (Version 2)
Quarter: 2012Q4

REPORT INFORMATION
  Report Type: Spontaneous
  Country: US (occurrence: None)
  Receive Date: 20120920
  Receipt Date: 20121004
  Transmission Date: 20130627
  Serious: Yes (Hospitalization)
  Sender: FDA-Public Use
  Company Number: 2012S1006051

PATIENT
  Age: 23 Day
  Sex: Male

DRUGS (3)
  1. ZINC OXIDE [Suspect]
     Indication: NASAL DISCHARGE
     Route: 045
     Dates: start: 20100808, end: 20100808
  2. ZINC OXIDE [Suspect]
     Indication: NASAL CONGESTION
     Route: 045
     Dates: start: 20100808, end: 20100808
  3. SALINE [Concomitant]

REACTIONS (7)
  - Premature baby [None]
  - Choking [None]
  - Pneumonitis chemical [None]
  - Aspiration [None]
  - Acute respiratory failure [None]
  - Grunting [None]
  - Pneumomediastinum [None]
